FAERS Safety Report 12305547 (Version 1)
Quarter: 2016Q2

REPORT INFORMATION
  Report Type: Spontaneous
  Country: US (occurrence: US)
  Receive Date: 20160426
  Receipt Date: 20160426
  Transmission Date: 20160815
  Serious: Yes (Hospitalization, Other)
  Sender: FDA-Public Use
  Company Number: ALCN2016US002903

PATIENT
  Age: 6 Week
  Sex: Female

DRUGS (1)
  1. PHENYLEPHRINE HCL [Suspect]
     Active Substance: PHENYLEPHRINE HYDROCHLORIDE
     Indication: INVESTIGATION
     Dosage: 1 GTT, ONCE/SINGLE
     Route: 047

REACTIONS (6)
  - Cyanosis [Recovered/Resolved]
  - Cardio-respiratory arrest [Recovered/Resolved]
  - Pulse absent [Recovered/Resolved]
  - Unresponsive to stimuli [Recovered/Resolved]
  - Apnoeic attack [Recovered/Resolved]
  - Drug administered to patient of inappropriate age [Recovered/Resolved]
